FAERS Safety Report 4457285-5 (Version None)
Quarter: 2004Q3

REPORT INFORMATION
  Report Type: 
  Country: None (occurrence: None)
  Receive Date: 20040922
  Receipt Date: 20040910
  Transmission Date: 20050211
  Serious: Yes (Hospitalization, Other)
  Sender: FDA-Public Use
  Company Number: 2004059316

PATIENT
  Age: 63 Year
  Sex: Female
  Weight: 90.2658 kg

DRUGS (10)
  1. NORVASC [Suspect]
     Indication: HYPERTENSION
     Dosage: 5 MG (2.5 MG, 2 IN 1 D), ORAL
     Route: 048
     Dates: start: 20040120
  2. MONTELUKAST (MONTELUKAST) [Suspect]
     Indication: ASTHMA
     Dosage: ORAL
     Route: 048
     Dates: start: 20040101, end: 20040501
  3. MONTELUKAST (MONTELUKAST) [Suspect]
     Indication: BRONCHOSPASM
     Dosage: ORAL
     Route: 048
     Dates: start: 20040101, end: 20040501
  4. FUROSEMIDE [Suspect]
     Indication: FLUID RETENTION
     Dosage: 20 MG (1 IN 1 D),
  5. LEVOTHYROXINE SODIUM [Concomitant]
  6. CONJUGATED ESTROGENS [Concomitant]
  7. LORAZEPAM [Concomitant]
  8. FEXOFENADINE HYDROCHLORIDE [Concomitant]
  9. GLYCOPYRRONIUM BROMIDE (GLYCOPYRRONIUM BROMIDE) [Concomitant]
  10. VICODIN [Concomitant]

REACTIONS (25)
  - ABDOMINAL PAIN UPPER [None]
  - ASTHENIA [None]
  - ASTHMA [None]
  - BLOOD PRESSURE DECREASED [None]
  - BLOOD PRESSURE INCREASED [None]
  - BRONCHOSPASM [None]
  - CARTILAGE INJURY [None]
  - CHILLS [None]
  - CONDITION AGGRAVATED [None]
  - DIZZINESS [None]
  - EPISTAXIS [None]
  - FEELING ABNORMAL [None]
  - HEART RATE INCREASED [None]
  - HYPERHIDROSIS [None]
  - INSOMNIA [None]
  - MENISCUS LESION [None]
  - NAUSEA [None]
  - OEDEMA PERIPHERAL [None]
  - PAIN IN EXTREMITY [None]
  - RASH [None]
  - RENAL DISORDER [None]
  - SWOLLEN TONGUE [None]
  - THINKING ABNORMAL [None]
  - TONGUE SPASM [None]
  - TRISMUS [None]
